FAERS Safety Report 4335425-6 (Version None)
Quarter: 2004Q2

REPORT INFORMATION
  Report Type: 
  Country: None (occurrence: None)
  Receive Date: 20040409
  Receipt Date: 20020213
  Transmission Date: 20050107
  Serious: Yes (Hospitalization)
  Sender: FDA-Public Use
  Company Number: US-BRISTOL-MYERS SQUIBB COMPANY-11724390

PATIENT
  Age: 73 Year
  Sex: Male
  Weight: 77 kg

DRUGS (7)
  1. CARBOPLATIN [Suspect]
     Indication: NON-SMALL CELL LUNG CANCER
     Route: 042
     Dates: start: 20020114, end: 20020114
  2. TAXOL [Suspect]
     Indication: NON-SMALL CELL LUNG CANCER
     Route: 042
     Dates: start: 20020114, end: 20020128
  3. MS CONTIN [Concomitant]
     Indication: FLANK PAIN
     Route: 048
     Dates: start: 20020114
  4. MS CONTIN [Concomitant]
     Indication: PAINFUL RESPIRATION
     Route: 048
     Dates: start: 20020114
  5. MOTRIN [Concomitant]
     Indication: BONE PAIN
     Route: 048
     Dates: start: 20011217
  6. ROBITUSSIN AC [Concomitant]
     Indication: COUGH
     Route: 048
     Dates: start: 20011217
  7. TEQUIN [Concomitant]
     Indication: INFECTION PROPHYLAXIS
     Route: 048
     Dates: start: 20020210

REACTIONS (5)
  - DYSPNOEA [None]
  - GRANULOCYTE COUNT DECREASED [None]
  - NEUTROPHIL COUNT DECREASED [None]
  - PRODUCTIVE COUGH [None]
  - PYREXIA [None]
